FAERS Safety Report 12615726 (Version 2)
Quarter: 2017Q1

REPORT INFORMATION
  Report Type: Spontaneous
  Country: FR (occurrence: FR)
  Receive Date: 20160802
  Receipt Date: 20170227
  Transmission Date: 20170428
  Serious: Yes (Hospitalization)
  Sender: FDA-Public Use
  Company Number: FR-MERCK KGAA-1055771

PATIENT
  Age: 86 Year
  Sex: Female

DRUGS (11)
  1. BISOPROLOL FUMARATE. [Suspect]
     Active Substance: BISOPROLOL FUMARATE
     Route: 048
  2. NITRIDERM [Concomitant]
     Active Substance: NITROGLYCERIN
     Dates: end: 20160609
  3. FUROSEMIDE. [Suspect]
     Active Substance: FUROSEMIDE
     Route: 048
  4. NOVOTHYROX [Suspect]
     Active Substance: LEVOTHYROXINE SODIUM
     Indication: HYPOTHYROIDISM
     Route: 048
  5. LOVENOX [Suspect]
     Active Substance: ENOXAPARIN SODIUM
     Route: 048
     Dates: end: 201606
  6. ASPEGIC [Concomitant]
     Active Substance: ASPIRIN DL-LYSINE
  7. DIGOXIN. [Concomitant]
     Active Substance: DIGOXIN
  8. MOLSIDOMINE [Concomitant]
     Active Substance: MOLSIDOMINE
     Dates: end: 20160606
  9. KARDEGIC [Concomitant]
     Active Substance: ASPIRIN LYSINE
     Dates: end: 20160610
  10. RAMIPRIL. [Concomitant]
     Active Substance: RAMIPRIL
  11. DIFFU K [Concomitant]
     Active Substance: POTASSIUM CHLORIDE

REACTIONS (2)
  - Cell death [Recovering/Resolving]
  - Cholestasis [Recovering/Resolving]

NARRATIVE: CASE EVENT DATE: 20160606
